FAERS Safety Report 16331965 (Version 3)
Quarter: 2021Q1

REPORT INFORMATION
  Report Type: Report from Study
  Country: US (occurrence: US)
  Receive Date: 20190520
  Receipt Date: 20210108
  Transmission Date: 20210419
  Serious: No
  Sender: FDA-Public Use
  Company Number: US-ACADIA PHARMACEUTICALS INC.-ACA-2019-012501

PATIENT
  Sex: Female

DRUGS (25)
  1. MEMANTINE HCL [Concomitant]
     Active Substance: MEMANTINE
  2. DICLOFENAC [Concomitant]
     Active Substance: DICLOFENAC
  3. VITAMIN B [Concomitant]
     Active Substance: VITAMIN B
     Indication: PRODUCT USED FOR UNKNOWN INDICATION
  4. LACTULOSE. [Concomitant]
     Active Substance: LACTULOSE
     Dosage: 10GM/15
  5. NAPROXEN. [Concomitant]
     Active Substance: NAPROXEN
  6. SSD [Concomitant]
     Active Substance: SILVER SULFADIAZINE
     Dosage: 10GM/15
  7. DONEPEZIL. [Concomitant]
     Active Substance: DONEPEZIL
  8. ROSUVASTATIN. [Concomitant]
     Active Substance: ROSUVASTATIN
  9. BACITRACIN ZINC AND POLYMYXIN B SULFATE [Concomitant]
     Active Substance: BACITRACIN ZINC\POLYMYXIN B SULFATE
  10. NUPLAZID [Suspect]
     Active Substance: PIMAVANSERIN TARTRATE
     Dosage: 34 MG, QD
     Route: 048
     Dates: start: 20200923, end: 20201210
  11. LUMIGAN [Concomitant]
     Active Substance: BIMATOPROST
  12. NUPLAZID [Suspect]
     Active Substance: PIMAVANSERIN TARTRATE
     Indication: PARKINSON^S DISEASE
     Dosage: 34 MG, QD
     Route: 048
     Dates: start: 20190115
  13. MAGNESIUM [Concomitant]
     Active Substance: MAGNESIUM
  14. GABAPENTIN. [Concomitant]
     Active Substance: GABAPENTIN
  15. VENLAFAXINE [Concomitant]
     Active Substance: VENLAFAXINE HYDROCHLORIDE
  16. SF (SODIUM FLUORIDE) [Concomitant]
     Active Substance: SODIUM FLUORIDE
  17. VITAMIN D3 [Concomitant]
     Active Substance: CHOLECALCIFEROL
  18. CARBIDOPA/LEVODOPA [Concomitant]
     Active Substance: CARBIDOPA\LEVODOPA
  19. MIDODRINE [Concomitant]
     Active Substance: MIDODRINE
  20. VITAMIN B6 [Concomitant]
     Active Substance: PYRIDOXINE HYDROCHLORIDE
     Indication: PRODUCT USED FOR UNKNOWN INDICATION
  21. LACTULOSE. [Concomitant]
     Active Substance: LACTULOSE
     Dosage: SOLUTION 0.01 PERCENT
  22. CEPHALEXIN [CEFALEXIN] [Concomitant]
     Active Substance: CEPHALEXIN
  23. PREMARIN [Concomitant]
     Active Substance: ESTROGENS, CONJUGATED
  24. VITAMIN D [Concomitant]
     Active Substance: VITAMIN D NOS
     Indication: PRODUCT USED FOR UNKNOWN INDICATION
  25. FLUDROCORTISON [Concomitant]
     Active Substance: FLUDROCORTISONE

REACTIONS (4)
  - Conjunctivitis [Recovered/Resolved]
  - Dysphagia [Not Recovered/Not Resolved]
  - Rash [Recovered/Resolved]
  - Wrong technique in product usage process [Unknown]

NARRATIVE: CASE EVENT DATE: 2019
